FAERS Safety Report 19294402 (Version 1)
Quarter: 2021Q2

REPORT INFORMATION
  Report Type: Spontaneous
  Country: US (occurrence: US)
  Receive Date: 20210524
  Receipt Date: 20210524
  Transmission Date: 20210717
  Serious: Yes (Hospitalization)
  Sender: FDA-Public Use
  Company Number: None

PATIENT
  Age: 30 Year
  Sex: Male

DRUGS (1)
  1. BAMLANIVIMAB AND ETESEVIMAB [Suspect]
     Active Substance: BAMLANIVIMAB\ETESEVIMAB
     Indication: COVID-19
     Dates: start: 20210429, end: 20210429

REACTIONS (5)
  - Infusion related reaction [None]
  - Paraesthesia [None]
  - Dyspepsia [None]
  - Feeling hot [None]
  - Chest discomfort [None]

NARRATIVE: CASE EVENT DATE: 20210429
